FAERS Safety Report 6640253-2 (Version None)
Quarter: 2010Q1

REPORT INFORMATION
  Report Type: 
  Country: None (occurrence: None)
  Receive Date: 20100318
  Receipt Date: 20100304
  Transmission Date: 20100710
  Serious: Yes (Hospitalization)
  Sender: FDA-Public Use
  Company Number: CA-CELGENEUS-028-C5013-10030577

PATIENT
  Sex: Female
  Weight: 60.7 kg

DRUGS (1)
  1. CC-5013 [Suspect]
     Route: 065
     Dates: start: 20100208, end: 20100301

REACTIONS (1)
  - TUMOUR FLARE [None]
